FAERS Safety Report 11344809 (Version 1)
Quarter: 2015Q3

REPORT INFORMATION
  Report Type: Spontaneous
  Country: US (occurrence: None)
  Receive Date: 20150805
  Receipt Date: 20150805
  Transmission Date: 20151125
  Serious: Yes (Life-Threatening, Disabling, Other)
  Sender: FDA-Public Use
  Company Number: None

PATIENT
  Age: 62 Year
  Sex: Female
  Weight: 48.08 kg

DRUGS (3)
  1. CLINDAMYCIN HCL 300 MG RANBAXY [Suspect]
     Active Substance: CLINDAMYCIN HYDROCHLORIDE
     Indication: DENTAL OPERATION
     Dosage: TAKEN BY MOUTH
     Dates: start: 20141201, end: 20141205
  2. CLINDAMYCIN HCL 300 MG RANBAXY [Suspect]
     Active Substance: CLINDAMYCIN HYDROCHLORIDE
     Indication: PROPHYLAXIS
     Dosage: TAKEN BY MOUTH
     Dates: start: 20141201, end: 20141205
  3. PROBIOTICS W/72 MINERALS [Concomitant]

REACTIONS (3)
  - Clostridium test positive [None]
  - Diarrhoea [None]
  - Weight decreased [None]

NARRATIVE: CASE EVENT DATE: 20141201
